FAERS Safety Report 4643664-X (Version None)
Quarter: 2005Q2

REPORT INFORMATION
  Report Type: 
  Country: None (occurrence: None)
  Receive Date: 20050425
  Receipt Date: 20050411
  Transmission Date: 20051028
  Serious: Yes (Other)
  Sender: FDA-Public Use
  Company Number: GB-JNJFOC-20050300987

PATIENT
  Age: 60 Year
  Sex: Female
  Weight: 75.85 kg

DRUGS (6)
  1. IBUPROFEN [Suspect]
     Indication: PAIN
     Route: 049
  2. IBUPROFEN [Suspect]
     Indication: ARTHRITIS
     Route: 049
  3. CO-PROXAMOL [Concomitant]
     Route: 049
  4. CO-PROXAMOL [Concomitant]
     Dosage: 1-2 3X DAILY
     Route: 049
  5. COLOFAC [Concomitant]
     Route: 049
  6. CUPROFEN [Concomitant]
     Route: 049

REACTIONS (4)
  - DIZZINESS [None]
  - DYSGEUSIA [None]
  - NAUSEA [None]
  - PYREXIA [None]
